FAERS Safety Report 16405339 (Version 2)
Quarter: 2019Q3

REPORT INFORMATION
  Report Type: Report from Study
  Country: GB (occurrence: GB)
  Receive Date: 20190607
  Receipt Date: 20190709
  Transmission Date: 20191004
  Serious: Yes (Other)
  Sender: FDA-Public Use
  Company Number: GB-EMD SERONO-9096124

PATIENT
  Sex: Female

DRUGS (5)
  1. MAVENCLAD [Suspect]
     Active Substance: CLADRIBINE
     Indication: MULTIPLE SCLEROSIS
     Dosage: FIRST WEEK THERAPY: TWO TABLETS (EACH OF 10MG) ON DAY 1 AND ONE TABLET ON DAYS 2 TO 5
     Route: 048
     Dates: start: 20180627
  2. RANITIDINE. [Concomitant]
     Active Substance: RANITIDINE
     Indication: PRODUCT USED FOR UNKNOWN INDICATION
  3. IBUPROFEN. [Concomitant]
     Active Substance: IBUPROFEN
     Indication: PRODUCT USED FOR UNKNOWN INDICATION
  4. CITALOPRAM [Concomitant]
     Active Substance: CITALOPRAM HYDROBROMIDE
     Indication: PRODUCT USED FOR UNKNOWN INDICATION
  5. MAVENCLAD [Suspect]
     Active Substance: CLADRIBINE
     Dosage: SECOND WEEK THERAPY: TWO TABLETS (EACH OF 10MG) ON DAY 1 AND ONE TABLET ON DAYS 2 TO 5
     Route: 048
     Dates: start: 20180725

REACTIONS (1)
  - Retinal detachment [Recovering/Resolving]
